FAERS Safety Report 10922665 (Version 1)
Quarter: 2015Q1

REPORT INFORMATION
  Report Type: Spontaneous
  Country: DK (occurrence: IT)
  Receive Date: 20150317
  Receipt Date: 20150317
  Transmission Date: 20150721
  Serious: Yes (Hospitalization)
  Sender: FDA-Public Use
  Company Number: IT-FRI-1000075285

PATIENT
  Age: 85 Year
  Sex: Female

DRUGS (2)
  1. MINIAS [Suspect]
     Active Substance: LORMETAZEPAM
     Indication: SUICIDE ATTEMPT
     Route: 048
     Dates: start: 20141017, end: 20141017
  2. MEMANTINE [Suspect]
     Active Substance: MEMANTINE
     Indication: SUICIDE ATTEMPT
     Dosage: 5 TABLETS
     Route: 048
     Dates: start: 20141017, end: 20141017

REACTIONS (3)
  - Toxicity to various agents [Unknown]
  - Sopor [Unknown]
  - Coma [Unknown]

NARRATIVE: CASE EVENT DATE: 20141017
